FAERS Safety Report 20514147 (Version 1)
Quarter: 2022Q1

REPORT INFORMATION
  Report Type: Spontaneous
  Country: CN (occurrence: CN)
  Receive Date: 20220224
  Receipt Date: 20220224
  Transmission Date: 20220424
  Serious: Yes (Other)
  Sender: FDA-Public Use
  Company Number: CN-ABBVIE-22K-035-4289669-00

PATIENT
  Age: 67 Year
  Sex: Male
  Weight: 65 kg

DRUGS (6)
  1. VENETOCLAX [Suspect]
     Active Substance: VENETOCLAX
     Indication: Acute monocytic leukaemia
     Route: 048
     Dates: start: 20220209, end: 20220223
  2. AZACITIDINE [Suspect]
     Active Substance: AZACITIDINE
     Indication: Acute monocytic leukaemia
     Route: 058
     Dates: start: 20220210, end: 20220216
  3. MEROPENEM [Suspect]
     Active Substance: MEROPENEM
     Indication: Acute monocytic leukaemia
     Route: 041
     Dates: start: 20220209, end: 20220223
  4. SODIUM CHLORIDE [Concomitant]
     Active Substance: SODIUM CHLORIDE
     Indication: Vehicle solution use
     Route: 041
     Dates: start: 20220209, end: 20220223
  5. STERILIZED WATER FOR INJECTIONS [Concomitant]
     Indication: Febrile infection
     Route: 058
     Dates: start: 20220210, end: 20220216
  6. MELOXICAM [Concomitant]
     Active Substance: MELOXICAM
     Indication: Product used for unknown indication

REACTIONS (1)
  - Blood bilirubin increased [Recovering/Resolving]

NARRATIVE: CASE EVENT DATE: 20220211
